FAERS Safety Report 13058099 (Version 1)
Quarter: 2016Q4

REPORT INFORMATION
  Report Type: Spontaneous
  Country: US (occurrence: US)
  Receive Date: 20161223
  Receipt Date: 20161223
  Transmission Date: 20170207
  Serious: No
  Sender: FDA-Public Use
  Company Number: US-DRREDDYS-USA/USA/16/0082348

PATIENT
  Age: 37 Year
  Sex: Male

DRUGS (1)
  1. CITALOPRAM [Suspect]
     Active Substance: CITALOPRAM HYDROBROMIDE
     Indication: DEPRESSION
     Route: 048

REACTIONS (6)
  - Hallucination, auditory [Unknown]
  - Contraindicated product administered [Unknown]
  - Therapy cessation [Unknown]
  - Hyperhidrosis [Unknown]
  - Pruritus generalised [Unknown]
  - Insomnia [Unknown]

NARRATIVE: CASE EVENT DATE: 201608
